FAERS Safety Report 13871833 (Version 1)
Quarter: 2017Q3

REPORT INFORMATION
  Report Type: Spontaneous
  Country: BR (occurrence: BR)
  Receive Date: 20170816
  Receipt Date: 20170816
  Transmission Date: 20171127
  Serious: Yes (Other)
  Sender: FDA-Public Use
  Company Number: BR-JNJFOC-20170810785

PATIENT
  Sex: Female
  Weight: 82 kg

DRUGS (2)
  1. INVOKANA [Suspect]
     Active Substance: CANAGLIFLOZIN
     Indication: HEPATIC STEATOSIS
     Route: 065
     Dates: start: 201708
  2. INVOKANA [Suspect]
     Active Substance: CANAGLIFLOZIN
     Indication: HEPATIC STEATOSIS
     Route: 065
     Dates: start: 201706

REACTIONS (6)
  - Vulvovaginal dryness [Recovering/Resolving]
  - Dysuria [Recovering/Resolving]
  - Product use in unapproved indication [Unknown]
  - Haemorrhage [Recovering/Resolving]
  - Vaginal discharge [Recovering/Resolving]
  - Off label use [Unknown]
